FAERS Safety Report 4407350-3 (Version None)
Quarter: 2004Q3

REPORT INFORMATION
  Report Type: 
  Country: None (occurrence: None)
  Receive Date: 20040726
  Receipt Date: 20040719
  Transmission Date: 20050211
  Serious: Yes (Death)
  Sender: FDA-Public Use
  Company Number: PHEH2004US07771

PATIENT
  Age: 60 Year
  Sex: Female

DRUGS (4)
  1. AREDIA [Suspect]
     Indication: BREAST CANCER METASTATIC
     Dosage: 90MG/ Q28DAYS
     Route: 042
     Dates: start: 19980928, end: 20030905
  2. ZYRTEC [Concomitant]
  3. WARFARIN SODIUM [Concomitant]
  4. MIRTAZAPINE [Concomitant]

REACTIONS (3)
  - BONE SCAN ABNORMAL [None]
  - COMPLETED SUICIDE [None]
  - PAIN IN JAW [None]
